FAERS Safety Report 9246279 (Version 4)
Quarter: 2013Q3

REPORT INFORMATION
  Report Type: Report from Study
  Country: US (occurrence: US)
  Receive Date: 20130422
  Receipt Date: 20130710
  Transmission Date: 20140515
  Serious: Yes (Hospitalization, Other)
  Sender: FDA-Public Use
  Company Number: PHEH2013US008787

PATIENT
  Sex: Female

DRUGS (3)
  1. GLEEVEC [Suspect]
     Dosage: 400 MG, QD
     Route: 048
  2. GLEEVEC [Suspect]
     Dosage: 400 MG, BID
     Route: 048
  3. GLEEVEC [Suspect]
     Dosage: 400 MG, QD
     Route: 048

REACTIONS (7)
  - Aphagia [Unknown]
  - Electrolyte imbalance [Unknown]
  - Nausea [Unknown]
  - Weight decreased [Unknown]
  - Blood potassium decreased [Unknown]
  - Drug intolerance [Unknown]
  - Drug ineffective [Unknown]
